FAERS Safety Report 6180015-6 (Version None)
Quarter: 2009Q2

REPORT INFORMATION
  Report Type: 
  Country: None (occurrence: None)
  Receive Date: 20090501
  Receipt Date: 20090427
  Transmission Date: 20091009
  Serious: Yes (Other)
  Sender: FDA-Public Use
  Company Number: CHPA2009US10305

PATIENT
  Age: 70 Year
  Sex: Female
  Weight: 91.2 kg

DRUGS (1)
  1. NICOTINE [Suspect]
     Indication: SMOKING CESSATION THERAPY
     Dosage: 21 MG, QD, TRANSDERMAL
     Route: 062
     Dates: start: 20090401

REACTIONS (4)
  - CARDIAC PACEMAKER INSERTION [None]
  - DRUG INEFFECTIVE [None]
  - INCORRECT ROUTE OF DRUG ADMINISTRATION [None]
  - NICOTINE DEPENDENCE [None]
